FAERS Safety Report 4535070-3 (Version None)
Quarter: 2004Q4

REPORT INFORMATION
  Report Type: 
  Country: None (occurrence: None)
  Receive Date: 20041222
  Receipt Date: 20041213
  Transmission Date: 20050328
  Serious: Yes (Life-Threatening, Hospitalization)
  Sender: FDA-Public Use
  Company Number: GB-ROCHE-389079

PATIENT
  Age: 52 Year
  Sex: Female

DRUGS (5)
  1. NAPROXEN [Suspect]
     Route: 048
     Dates: start: 20041013, end: 20041030
  2. VIOXX [Concomitant]
     Route: 048
     Dates: end: 20041013
  3. RANITIDINE [Concomitant]
     Route: 048
     Dates: start: 20041019
  4. PROCHLORPERAZINE [Concomitant]
     Route: 048
  5. LEVOTHYROXINE SODIUM [Concomitant]
     Indication: HYPOTHYROIDISM
     Route: 048

REACTIONS (2)
  - HEPATIC FAILURE [None]
  - RENAL FAILURE [None]
